FAERS Safety Report 25152183 (Version 2)
Quarter: 2025Q2

REPORT INFORMATION
  Report Type: Report from Study
  Country: US (occurrence: US)
  Receive Date: 20250402
  Receipt Date: 20250625
  Transmission Date: 20250717
  Serious: Yes (Other)
  Sender: ABBVIE
  Company Number: US-ABBVIE-6200577

PATIENT
  Age: 61 Year
  Sex: Female

DRUGS (1)
  1. SKYRIZI [Suspect]
     Active Substance: RISANKIZUMAB-RZAA
     Indication: Crohn^s disease
     Route: 058
     Dates: start: 20240828, end: 202505

REACTIONS (5)
  - Osteonecrosis [Not Recovered/Not Resolved]
  - Diverticulitis intestinal perforated [Recovered/Resolved]
  - Atrial fibrillation [Recovered/Resolved]
  - Deafness [Unknown]
  - Vision blurred [Unknown]

NARRATIVE: CASE EVENT DATE: 20241121
